FAERS Safety Report 12037404 (Version 1)
Quarter: 2016Q1

REPORT INFORMATION
  Report Type: Spontaneous
  Country: US (occurrence: None)
  Receive Date: 20160205
  Receipt Date: 20160205
  Transmission Date: 20160526
  Serious: Yes (Hospitalization)
  Sender: FDA-Public Use
  Company Number: None

PATIENT
  Age: 36 Year
  Sex: Female
  Weight: 53.52 kg

DRUGS (1)
  1. PARAGARD T 380A [Suspect]
     Active Substance: COPPER
     Dates: start: 20110913, end: 20111019

REACTIONS (3)
  - Exposure during pregnancy [None]
  - Abdominal hernia [None]
  - Nerve injury [None]

NARRATIVE: CASE EVENT DATE: 20111019
